FAERS Safety Report 26155392 (Version 1)
Quarter: 2025Q4

REPORT INFORMATION
  Report Type: Spontaneous
  Country: US (occurrence: US)
  Receive Date: 20251215
  Receipt Date: 20251215
  Transmission Date: 20260118
  Serious: Yes (Other)
  Sender: ROCHE
  Company Number: US-ROCHE-10000452743

PATIENT
  Age: 59 Year
  Sex: Female
  Weight: 83.46 kg

DRUGS (4)
  1. KADCYLA [Suspect]
     Active Substance: ADO-TRASTUZUMAB EMTANSINE
     Indication: Breast cancer metastatic
     Dosage: TOTAL OF 14 TREATMENTS
     Route: 042
     Dates: end: 2025
  2. GABAPENTIN [Concomitant]
     Active Substance: GABAPENTIN
     Indication: Spinal cord injury
     Dosage: 3200MG DAILY TOTAL
     Route: 048
     Dates: start: 2010
  3. GABAPENTIN [Concomitant]
     Active Substance: GABAPENTIN
     Indication: Neuropathy peripheral
  4. FENTANYL [Concomitant]
     Active Substance: FENTANYL
     Indication: Spinal cord injury
     Dosage: 1 PATCH
     Route: 062
     Dates: start: 2010

REACTIONS (6)
  - Tooth injury [Not Recovered/Not Resolved]
  - Tooth loss [Not Recovered/Not Resolved]
  - Dental caries [Not Recovered/Not Resolved]
  - Weight decreased [Not Recovered/Not Resolved]
  - Gingival bleeding [Unknown]
  - Neuropathy peripheral [Not Recovered/Not Resolved]

NARRATIVE: CASE EVENT DATE: 20250101
